FAERS Safety Report 14375634 (Version 1)
Quarter: 2018Q1

REPORT INFORMATION
  Report Type: Spontaneous
  Country: US (occurrence: US)
  Receive Date: 20180110
  Receipt Date: 20180110
  Transmission Date: 20180509
  Serious: Yes (Disabling)
  Sender: FDA-Public Use
  Company Number: None

PATIENT
  Age: 75 Year
  Sex: Male
  Weight: 67.5 kg

DRUGS (8)
  1. MULTIPLE VITAMIN [Concomitant]
     Active Substance: VITAMINS
  2. VITAMIN D3 [Concomitant]
     Active Substance: CHOLECALCIFEROL
  3. TEGRETOL [Suspect]
     Active Substance: CARBAMAZEPINE
     Indication: NEURALGIA
     Dosage: ?          QUANTITY:75 TABLET(S);?
     Route: 048
     Dates: start: 20171102, end: 20171209
  4. MAGNESIUM [Concomitant]
     Active Substance: MAGNESIUM
  5. NORCO [Concomitant]
     Active Substance: ACETAMINOPHEN\HYDROCODONE BITARTRATE
  6. STOOL SOFTENER (DOCUSATE) [Concomitant]
     Active Substance: DOCUSATE
  7. CRANBERRY EXTRACT [Concomitant]
     Active Substance: CRANBERRY JUICE
  8. MIRALAX [Concomitant]
     Active Substance: POLYETHYLENE GLYCOL 3350

REACTIONS (12)
  - Autoimmune disorder [None]
  - Hyperaesthesia [None]
  - Pyrexia [None]
  - Burning sensation [None]
  - Rash [None]
  - Skin exfoliation [None]
  - Tremor [None]
  - Chills [None]
  - Erythema [None]
  - Peripheral swelling [None]
  - Pain in extremity [None]
  - Pain [None]

NARRATIVE: CASE EVENT DATE: 20171207
